FAERS Safety Report 11922656 (Version 1)
Quarter: 2016Q1

REPORT INFORMATION
  Report Type: Spontaneous
  Country: ES (occurrence: ES)
  Receive Date: 20160115
  Receipt Date: 20160115
  Transmission Date: 20160526
  Serious: Yes (Hospitalization, Other)
  Sender: FDA-Public Use
  Company Number: ES-GILEAD-2016-0191954

PATIENT
  Age: 49 Year
  Sex: Male

DRUGS (5)
  1. LOPINAVIR [Concomitant]
     Active Substance: LOPINAVIR
     Route: 065
  2. LAMIVUDINE. [Concomitant]
     Active Substance: LAMIVUDINE
     Indication: HIV INFECTION
     Route: 065
  3. ABACAVIR. [Concomitant]
     Active Substance: ABACAVIR
     Indication: HIV INFECTION
     Route: 065
  4. HARVONI [Suspect]
     Active Substance: LEDIPASVIR\SOFOSBUVIR
     Indication: HEPATITIS C
     Dosage: UNK
     Route: 065
     Dates: start: 201504
  5. RITONAVIR. [Concomitant]
     Active Substance: RITONAVIR
     Route: 065

REACTIONS (1)
  - Hepatic failure [Recovering/Resolving]
